FAERS Safety Report 23252791 (Version 1)
Quarter: 2023Q4

REPORT INFORMATION
  Report Type: Spontaneous
  Country: BE (occurrence: BE)
  Receive Date: 20231201
  Receipt Date: 20231201
  Transmission Date: 20240109
  Serious: Yes (Hospitalization, Other)
  Sender: FDA-Public Use
  Company Number: BE-BRISTOL-MYERS SQUIBB COMPANY-2023-173434

PATIENT
  Age: 37 Year
  Sex: Male

DRUGS (2)
  1. NIVOLUMAB [Suspect]
     Active Substance: NIVOLUMAB
     Indication: Metastatic malignant melanoma
     Dosage: DOSE : 1MG/KG + 3MG/KG;     FREQ : 07-DEC-2022: C1D1 | 28-DEC-2022: C2D2 | 18-JAN-2023: C3D3
     Dates: start: 20221207
  2. IPILIMUMAB [Suspect]
     Active Substance: IPILIMUMAB
     Indication: Metastatic malignant melanoma
     Dates: start: 20221207

REACTIONS (4)
  - General physical health deterioration [Unknown]
  - Campylobacter colitis [Unknown]
  - Acute kidney injury [Unknown]
  - Duodenitis [Unknown]

NARRATIVE: CASE EVENT DATE: 20230208
